FAERS Safety Report 21667698 (Version 1)
Quarter: 2022Q4

REPORT INFORMATION
  Report Type: Report from Study
  Country: EG (occurrence: EG)
  Receive Date: 20221201
  Receipt Date: 20221201
  Transmission Date: 20230113
  Serious: Yes (Hospitalization, Other)
  Sender: FDA-Public Use
  Company Number: EG-002147023-NVSC2022EG275563

PATIENT
  Sex: Female

DRUGS (3)
  1. TASIGNA [Suspect]
     Active Substance: NILOTINIB
     Indication: Chronic myeloid leukaemia
     Dosage: UNK
     Route: 065
  2. TASIGNA [Suspect]
     Active Substance: NILOTINIB
     Dosage: 600 MG, QD (4 CAPS PER DAY, STRENGTH: 150MG)
     Route: 048
     Dates: start: 202106, end: 202106
  3. TASIGNA [Suspect]
     Active Substance: NILOTINIB
     Dosage: UNK  (STRENGTH: 200 MG)
     Route: 048
     Dates: start: 202109

REACTIONS (12)
  - Anaemia [Not Recovered/Not Resolved]
  - Hormone level abnormal [Not Recovered/Not Resolved]
  - Dizziness [Not Recovered/Not Resolved]
  - Hypoaesthesia [Not Recovered/Not Resolved]
  - Fatigue [Not Recovered/Not Resolved]
  - Headache [Not Recovered/Not Resolved]
  - Abdominal pain [Not Recovered/Not Resolved]
  - Product dose omission issue [Recovered/Resolved]
  - Product blister packaging issue [Not Recovered/Not Resolved]
  - Maternal exposure during pregnancy [Unknown]
  - Cytogenetic analysis abnormal [Recovered/Resolved]
  - Cytogenetic analysis abnormal [Not Recovered/Not Resolved]

NARRATIVE: CASE EVENT DATE: 20210101
